FAERS Safety Report 21362379 (Version 7)
Quarter: 2022Q4

REPORT INFORMATION
  Report Type: Report from Study
  Country: US (occurrence: US)
  Receive Date: 20220922
  Receipt Date: 20221227
  Transmission Date: 20230113
  Serious: Yes (Hospitalization, Other)
  Sender: FDA-Public Use
  Company Number: US-ABBVIE-4128285

PATIENT
  Age: 63 Year
  Sex: Female

DRUGS (6)
  1. HUMIRA [Suspect]
     Active Substance: ADALIMUMAB
     Indication: Rheumatoid arthritis
     Dosage: CITRATE FREE
     Route: 058
     Dates: start: 202205
  2. ULORIC [Concomitant]
     Active Substance: FEBUXOSTAT
     Indication: Gout
  3. MODERNA COVID-19 VACCINE [Concomitant]
     Active Substance: ELASOMERAN
     Indication: COVID-19 immunisation
     Dosage: TIME INTERVAL: TOTAL: ONE IN ONCE/FIRST DOSE
     Route: 030
     Dates: start: 20210111, end: 20210111
  4. MODERNA COVID-19 VACCINE [Concomitant]
     Active Substance: ELASOMERAN
     Indication: COVID-19 immunisation
     Dosage: TIME INTERVAL: TOTAL: 1 IN ONCE/SECOND DOSE
     Route: 030
     Dates: start: 20210201, end: 20210201
  5. COLCHICINE [Concomitant]
     Active Substance: COLCHICINE
     Indication: Gout
  6. FOLIC ACID [Concomitant]
     Active Substance: FOLIC ACID
     Indication: Supplementation therapy

REACTIONS (10)
  - Cholecystitis [Recovering/Resolving]
  - Blood alkaline phosphatase increased [Recovered/Resolved]
  - Stent removal [Recovering/Resolving]
  - Bile duct stent insertion [Recovering/Resolving]
  - Arthralgia [Unknown]
  - Pyrexia [Unknown]
  - Obesity [Unknown]
  - Surgery [Unknown]
  - Cholelithiasis [Unknown]
  - Infection [Recovered/Resolved]

NARRATIVE: CASE EVENT DATE: 20220911
